FAERS Safety Report 8779453 (Version 2)
Quarter: 2012Q4

REPORT INFORMATION
  Report Type: 
  Country: GB (occurrence: GB)
  Receive Date: 20120912
  Receipt Date: 20121029
  Transmission Date: 20130627
  Serious: No
  Sender: FDA-Public Use
  Company Number: GB-B.I. PHARMACEUTICALS,INC./RIDGEFIELD-2012-UK-01192UK

PATIENT
  Age: 61 Year
  Sex: Male
  Weight: 62 kg

DRUGS (4)
  1. SPIRIVA [Suspect]
     Indication: CHRONIC OBSTRUCTIVE PULMONARY DISEASE
     Dosage: 18 mcg
     Route: 055
  2. SPIRIVA [Suspect]
     Dosage: 18 mcg
     Route: 048
  3. IMURAN [Concomitant]
     Dosage: 120 mg
     Route: 048
  4. SIMVASTATIN [Concomitant]
     Dosage: 40 mg
     Route: 048

REACTIONS (1)
  - Incorrect route of drug administration [Recovered/Resolved]
